FAERS Safety Report 6214146-9 (Version None)
Quarter: 2009Q2

REPORT INFORMATION
  Report Type: 
  Country: None (occurrence: None)
  Receive Date: 20090604
  Receipt Date: 20090602
  Transmission Date: 20091009
  Serious: Yes (Other)
  Sender: FDA-Public Use
  Company Number: CH-BRISTOL-MYERS SQUIBB COMPANY-14639918

PATIENT
  Age: 14 Year
  Sex: Female

DRUGS (5)
  1. ORENCIA [Suspect]
     Indication: MUSCULOSKELETAL PAIN
     Route: 042
     Dates: start: 20080701, end: 20090501
  2. ORENCIA [Suspect]
     Indication: JUVENILE ARTHRITIS
     Route: 042
     Dates: start: 20080701, end: 20090501
  3. OMEPRAZOLE [Concomitant]
  4. DICLOFENAC SODIUM [Concomitant]
  5. CALCIMAGON-D3 [Concomitant]

REACTIONS (1)
  - TRANSAMINASES INCREASED [None]
